FAERS Safety Report 7273350-1 (Version None)
Quarter: 2011Q1

REPORT INFORMATION
  Report Type: 
  Country: None (occurrence: None)
  Receive Date: 20110203
  Receipt Date: 20100728
  Transmission Date: 20110831
  Serious: No
  Sender: FDA-Public Use
  Company Number: US-ABBOTT-10P-163-0661944-00

PATIENT
  Sex: Female
  Weight: 81.72 kg

DRUGS (5)
  1. SYNTHROID [Suspect]
     Indication: GOITRE
     Dates: start: 20091201
  2. SYNTHROID [Suspect]
     Dosage: EVERY MORNING ON AN EMPTY STOMACH
     Dates: start: 20070101
  3. SYNTHROID [Suspect]
  4. SYNTHROID [Suspect]
     Indication: GOITRE
  5. SYNTHROID [Suspect]
     Dates: start: 20091201

REACTIONS (4)
  - BLOOD THYROID STIMULATING HORMONE INCREASED [None]
  - DYSPHONIA [None]
  - DRY SKIN [None]
  - ABDOMINAL DISTENSION [None]
